FAERS Safety Report 7083321-6 (Version None)
Quarter: 2010Q4

REPORT INFORMATION
  Report Type: 
  Country: None (occurrence: None)
  Receive Date: 20101104
  Receipt Date: 20101029
  Transmission Date: 20110411
  Serious: Yes (Life-Threatening, Hospitalization)
  Sender: FDA-Public Use
  Company Number: PHHY2010DE74104

PATIENT
  Age: 67 Year
  Sex: Male
  Weight: 85 kg

DRUGS (6)
  1. DICLOFENAC SODIUM [Suspect]
     Indication: PAIN
     Dosage: 75 MG, TID
     Route: 048
     Dates: start: 20100920, end: 20100928
  2. METFORMIN [Suspect]
     Indication: TYPE 2 DIABETES MELLITUS
     Dosage: 850 MG, BID
     Route: 048
     Dates: end: 20100928
  3. FUROSEMID [Suspect]
     Indication: LEFT VENTRICULAR FAILURE
     Dosage: 40 MG, BID
     Route: 048
     Dates: start: 20100920
  4. FUROSEMID [Suspect]
     Dosage: 40 MG, QD
     Route: 048
     Dates: end: 20100920
  5. LISINOPRIL [Concomitant]
     Indication: HYPERTENSIVE HEART DISEASE
     Dosage: 10 MG
     Route: 048
  6. AMLODIPINE [Concomitant]
     Indication: HYPERTENSIVE HEART DISEASE
     Dosage: 5 MG
     Route: 048

REACTIONS (3)
  - CONVULSION [None]
  - LACTIC ACIDOSIS [None]
  - RENAL FAILURE ACUTE [None]
